FAERS Safety Report 21559995 (Version 2)
Quarter: 2022Q4

REPORT INFORMATION
  Report Type: Spontaneous
  Country: US (occurrence: US)
  Receive Date: 20221107
  Receipt Date: 20221202
  Transmission Date: 20230112
  Serious: No
  Sender: FDA-Public Use
  Company Number: US-PFIZER INC-202201246465

PATIENT
  Age: 12 Year
  Sex: Male
  Weight: 29.48 kg

DRUGS (1)
  1. GENOTROPIN [Suspect]
     Active Substance: SOMATROPIN
     Indication: Growth hormone deficiency
     Dosage: 1X/DAY (TAKES 1.8 EVERY NIGHT ONCE PER DAY INJECTED)
     Dates: start: 2019

REACTIONS (2)
  - Drug dose omission by device [Not Recovered/Not Resolved]
  - Device breakage [Unknown]

NARRATIVE: CASE EVENT DATE: 20221017
